FAERS Safety Report 17951699 (Version 1)
Quarter: 2020Q2

REPORT INFORMATION
  Report Type: Spontaneous
  Country: JP (occurrence: JP)
  Receive Date: 20200626
  Receipt Date: 20200626
  Transmission Date: 20200714
  Serious: No
  Sender: FDA-Public Use
  Company Number: JP-JNJFOC-20200433404

PATIENT
  Age: 63 Year
  Sex: Male

DRUGS (1)
  1. SIMPONI [Suspect]
     Active Substance: GOLIMUMAB
     Indication: RHEUMATOID ARTHRITIS
     Dosage: 50.00 MG / 0.50 ML
     Route: 058
     Dates: start: 20200424, end: 20200424

REACTIONS (4)
  - Underdose [Unknown]
  - Accidental exposure to product [Unknown]
  - Drug delivery system malfunction [Unknown]
  - Syringe issue [Unknown]

NARRATIVE: CASE EVENT DATE: 20200424
